FAERS Safety Report 6424823-2 (Version None)
Quarter: 2009Q4

REPORT INFORMATION
  Report Type: 
  Country: None (occurrence: None)
  Receive Date: 20091103
  Receipt Date: 20091028
  Transmission Date: 20100525
  Serious: Yes (Hospitalization)
  Sender: FDA-Public Use
  Company Number: PHHY2009IT43042

PATIENT
  Sex: Female

DRUGS (3)
  1. LAMISIL [Suspect]
     Indication: PERINEAL INFECTION
     Dosage: 250 MG PER DAY
     Route: 048
     Dates: start: 20090901, end: 20090916
  2. DEPAKENE [Concomitant]
     Dosage: 500 MG, UNK
     Route: 048
     Dates: start: 20070916, end: 20090916
  3. TEGRETOL [Concomitant]
     Dosage: 800 MG, UNK
     Route: 048
     Dates: start: 20070916, end: 20090916

REACTIONS (5)
  - ANGIOEDEMA [None]
  - BLISTER [None]
  - PEMPHIGOID [None]
  - RASH [None]
  - SKIN EXFOLIATION [None]
